FAERS Safety Report 5027622-1 (Version None)
Quarter: 2006Q2

REPORT INFORMATION
  Report Type: 
  Country: None (occurrence: None)
  Receive Date: 20060616
  Receipt Date: 20060313
  Transmission Date: 20061013
  Serious: Yes (Other)
  Sender: FDA-Public Use
  Company Number: PHEH2006US03403

PATIENT
  Age: 80 Year
  Sex: Male
  Weight: 102.95 kg

DRUGS (17)
  1. SYNTHROID [Concomitant]
     Dosage: 0.2 MG, QD
  2. PROCRIT [Concomitant]
  3. AMIODARONE HCL [Concomitant]
     Dosage: QD
  4. METOPROLOL TARTRATE [Concomitant]
     Dosage: UNK, BID
  5. PSEUDOEPHEDRINE HCL [Concomitant]
     Dosage: UNK, PRN
  6. XALATAN [Concomitant]
     Dosage: UNK, QD
  7. PREDNISONE [Concomitant]
     Dosage: 20 MG, QOD
  8. HALOTESTIN [Concomitant]
     Dosage: 10 MG, 2 BID
  9. THALIDOMIDE [Concomitant]
     Dosage: 100 MG, QD
  10. HYDROCHLOROTHIAZIDE [Concomitant]
     Dosage: UNK, PRN
  11. CEFTIN [Concomitant]
     Dosage: 500 MG, BID
  12. VITAMIN E [Concomitant]
     Dosage: 400 IU, QD
  13. CLARITIN [Concomitant]
  14. EXJADE [Suspect]
     Indication: BLOOD IRON INCREASED
     Dosage: 500 MG, QID
     Route: 048
     Dates: start: 20060115, end: 20060308
  15. MYCELEX [Concomitant]
  16. EPOGEN [Concomitant]
     Dosage: 80000 UNK, QWK
  17. EPOGEN [Concomitant]
     Dosage: 80000 UNK, 2XWK

REACTIONS (13)
  - ABDOMINAL DISCOMFORT [None]
  - ALANINE AMINOTRANSFERASE INCREASED [None]
  - ASPARTATE AMINOTRANSFERASE INCREASED [None]
  - BILIRUBIN CONJUGATED INCREASED [None]
  - BLOOD BILIRUBIN INCREASED [None]
  - BLOOD CREATININE INCREASED [None]
  - BLOOD PRESSURE DECREASED [None]
  - BLOOD UREA INCREASED [None]
  - DECREASED APPETITE [None]
  - HEPATIC FUNCTION ABNORMAL [None]
  - RASH PUSTULAR [None]
  - RENAL IMPAIRMENT [None]
  - WEIGHT DECREASED [None]
